FAERS Safety Report 5997542-4 (Version None)
Quarter: 2008Q4

REPORT INFORMATION
  Report Type: 
  Country: None (occurrence: None)
  Receive Date: 20081212
  Receipt Date: 20081118
  Transmission Date: 20090506
  Serious: No
  Sender: FDA-Public Use
  Company Number: US-ABBOTT-08P-163-0488175-00

PATIENT
  Sex: Female
  Weight: 83.082 kg

DRUGS (9)
  1. HUMIRA [Suspect]
     Indication: CROHN'S DISEASE
  2. TRIAMTRENE [Concomitant]
     Indication: BLOOD PRESSURE
     Dosage: 75/50 MG
     Route: 048
  3. POTASSIUM CHLORIDE [Concomitant]
     Indication: MINERAL SUPPLEMENTATION
     Route: 048
  4. DICYCLOVERINE [Concomitant]
     Indication: GASTROINTESTINAL DISORDER
     Route: 048
  5. ALPRAZOLAM [Concomitant]
     Indication: NERVOUSNESS
     Route: 048
  6. COLESTIPOL HYDROCHLORIDE [Concomitant]
     Indication: DIARRHOEA
     Dosage: 2 SCOOPS
  7. ALBUTEROL SULFATE [Concomitant]
     Indication: ASTHMA
     Route: 055
  8. FUROSEMIDE [Concomitant]
     Indication: DRUG USE FOR UNKNOWN INDICATION
     Route: 048
  9. AZMACORT [Concomitant]
     Indication: ASTHMA

REACTIONS (3)
  - DRUG DELIVERY SYSTEM MALFUNCTION [None]
  - INCORRECT DOSE ADMINISTERED [None]
  - INJECTION SITE IRRITATION [None]
